FAERS Safety Report 6693946-5 (Version None)
Quarter: 2010Q2

REPORT INFORMATION
  Report Type: 
  Country: None (occurrence: None)
  Receive Date: 20100423
  Receipt Date: 20100413
  Transmission Date: 20101027
  Serious: Yes (Hospitalization, Other)
  Sender: FDA-Public Use
  Company Number: JP-PFIZER INC-2010042724

PATIENT
  Age: 64 Year
  Weight: 66 kg

DRUGS (10)
  1. LIPITOR [Suspect]
     Dosage: 10 MG, DAILY
     Route: 048
     Dates: start: 20060101, end: 20090901
  2. LIPITOR [Suspect]
     Dosage: 5 MG, DAILY
     Route: 048
     Dates: start: 20090901
  3. MICARDIS [Suspect]
     Route: 048
  4. ALOSITOL [Suspect]
     Route: 048
  5. FLOMOX [Suspect]
     Indication: NASOPHARYNGITIS
     Dosage: UNK
  6. VESICARE [Concomitant]
     Dosage: UNK
  7. ADALAT CC [Concomitant]
     Dosage: UNK
  8. MUCOSTA [Concomitant]
     Dosage: UNK
     Route: 048
  9. ASPIRIN [Concomitant]
     Dosage: UNK
     Route: 048
  10. EVIPROSTAT [Concomitant]
     Dosage: UNK
     Route: 048

REACTIONS (6)
  - BACTERAEMIA [None]
  - HAEMODIALYSIS [None]
  - PROSTATITIS [None]
  - PYREXIA [None]
  - RENAL FAILURE ACUTE [None]
  - RHABDOMYOLYSIS [None]
